FAERS Safety Report 5622827-0 (Version None)
Quarter: 2008Q1

REPORT INFORMATION
  Report Type: 
  Country: None (occurrence: None)
  Receive Date: 20080212
  Receipt Date: 20080207
  Transmission Date: 20080703
  Serious: Yes (Hospitalization)
  Sender: FDA-Public Use
  Company Number: JP-BRISTOL-MYERS SQUIBB COMPANY-14070841

PATIENT
  Age: 60 Year
  Sex: Male

DRUGS (3)
  1. BRIPLATIN [Suspect]
     Indication: GASTRIC CANCER
     Route: 041
     Dates: start: 20070517, end: 20070517
  2. TS-1 [Suspect]
     Indication: GASTRIC CANCER
     Route: 048
     Dates: start: 20070510, end: 20070530
  3. LENTINAN [Suspect]
     Indication: GASTRIC CANCER
     Route: 042
     Dates: start: 20070501

REACTIONS (2)
  - CEREBRAL INFARCTION [None]
  - RENAL INFARCT [None]
